FAERS Safety Report 24459813 (Version 1)
Quarter: 2024Q4

REPORT INFORMATION
  Report Type: Report from Study
  Country: US (occurrence: US)
  Receive Date: 20241018
  Receipt Date: 20241018
  Transmission Date: 20250114
  Serious: No
  Sender: ROCHE
  Company Number: US-ROCHE-3541585

PATIENT
  Age: 38 Year
  Sex: Female

DRUGS (2)
  1. RITUXAN [Suspect]
     Active Substance: RITUXIMAB
     Indication: Demyelination
     Dosage: DATE OF SERVICE REPORTED ON 22/MAR/2024?STRENGTH: 10 MG/ML? FREQUENCY TEXT:DAY1, 15 THEN 6 MONTHS
     Route: 042
  2. RITUXAN [Suspect]
     Active Substance: RITUXIMAB
     Dosage: DATE OF SERVICE REPORTED ON 05/APR/2024.?STRENGTH: 10 MG/ML? FREQUENCY TEXT:DAY 1, 15 THEN 6 MONTHS
     Route: 042

REACTIONS (2)
  - Off label use [Unknown]
  - No adverse event [Unknown]
